FAERS Safety Report 23483174 (Version 4)
Quarter: 2024Q2

REPORT INFORMATION
  Report Type: Spontaneous
  Country: US (occurrence: US)
  Receive Date: 20240205
  Receipt Date: 20240605
  Transmission Date: 20240716
  Serious: Yes (Other)
  Sender: FDA-Public Use
  Company Number: US-PFIZER INC-202400029928

PATIENT
  Age: 50 Year
  Sex: Female
  Weight: 61.224 kg

DRUGS (15)
  1. PAXLOVID [Suspect]
     Active Substance: NIRMATRELVIR\RITONAVIR
     Indication: COVID-19 treatment
     Dosage: [NIRMATRELVIR 300 MG]/[RITONAVIR 100 MG]; 2X/DAY
     Route: 048
     Dates: start: 20240125, end: 20240129
  2. BUPROPION [Concomitant]
     Active Substance: BUPROPION
     Indication: Depression
     Dosage: UNK
     Dates: start: 1998
  3. BUPROPION [Concomitant]
     Active Substance: BUPROPION
     Dosage: 200 MG IN AM
     Dates: start: 2014
  4. LAMOTRIGINE [Concomitant]
     Active Substance: LAMOTRIGINE
     Indication: Affective disorder
     Dosage: UNK
     Dates: start: 1998
  5. LAMOTRIGINE [Concomitant]
     Active Substance: LAMOTRIGINE
     Dosage: 300 MG IN PM
     Dates: start: 2014
  6. CLONAZEPAM [Concomitant]
     Active Substance: CLONAZEPAM
     Indication: Anxiety
     Dosage: UNK
     Dates: start: 2020
  7. CLONAZEPAM [Concomitant]
     Active Substance: CLONAZEPAM
     Dosage: 1.5 MG IN PM
     Dates: start: 2021
  8. METHOCARBAMOL [Concomitant]
     Active Substance: METHOCARBAMOL
     Indication: Muscle relaxant therapy
     Dosage: UNK
     Dates: start: 2021
  9. METHOCARBAMOL [Concomitant]
     Active Substance: METHOCARBAMOL
     Dosage: 750 MG IN PM
     Dates: start: 20231122
  10. SUMATRIPTAN [Concomitant]
     Active Substance: SUMATRIPTAN
     Indication: Migraine
     Dosage: UNK, AS NEEDED
     Dates: start: 2021
  11. SUMATRIPTAN [Concomitant]
     Active Substance: SUMATRIPTAN
     Dosage: ONLY TAKE WITH MIGRAINE
     Dates: start: 20240123, end: 20240124
  12. ALEVE [Concomitant]
     Active Substance: NAPROXEN SODIUM
     Dosage: TAKEN AS NEEDED, NOT THE WHOLE TIME, OCCASIONAL
  13. WELLBUTRIN XL [Concomitant]
     Active Substance: BUPROPION HYDROCHLORIDE
     Indication: Bipolar disorder
     Dosage: 200 MG, 1X/DAY (1 TABLET IN AM)
  14. LAMICTAL [Concomitant]
     Active Substance: LAMOTRIGINE
     Indication: Bipolar disorder
     Dosage: 300 MG, 1X/DAY (2 TABLET IN PM)
  15. ROBAXIN [Concomitant]
     Active Substance: METHOCARBAMOL
     Indication: Migraine
     Dosage: 750 MG, 1X/DAY (1 TABLET IN BED TIME)

REACTIONS (12)
  - Neoplasm malignant [Recovered/Resolved]
  - Neuropathy peripheral [Not Recovered/Not Resolved]
  - Nausea [Recovered/Resolved]
  - Dizziness [Recovered/Resolved]
  - Tinnitus [Recovering/Resolving]
  - Nasal congestion [Recovered/Resolved]
  - Oropharyngeal pain [Recovered/Resolved]
  - Muscular weakness [Recovering/Resolving]
  - Mood swings [Unknown]
  - Vertigo [Unknown]
  - Confusional state [Unknown]
  - Vision blurred [Unknown]

NARRATIVE: CASE EVENT DATE: 20240101
